FAERS Safety Report 8080278-6 (Version None)
Quarter: 2012Q1

REPORT INFORMATION
  Report Type: 
  Country: None (occurrence: None)
  Receive Date: 20120130
  Receipt Date: 20120124
  Transmission Date: 20120608
  Serious: Yes (Hospitalization)
  Sender: FDA-Public Use
  Company Number: US-B.I. PHARMACEUTICALS,INC./RIDGEFIELD-2011-BP-25440BP

PATIENT
  Age: 93 Year
  Sex: Female
  Weight: 62.7 kg

DRUGS (6)
  1. ISOSORBIDE MONONITRATE [Concomitant]
  2. TRIAN HCT [Concomitant]
  3. LOSARTAN POTASSIUM [Concomitant]
  4. PRADAXA [Suspect]
     Indication: ATRIAL FIBRILLATION
     Dosage: 150 MG
  5. ASPIRIN [Concomitant]
  6. PROTONIX [Concomitant]

REACTIONS (1)
  - HAEMORRHAGE [None]
